FAERS Safety Report 6031859-2 (Version None)
Quarter: 2009Q1

REPORT INFORMATION
  Report Type: 
  Country: None (occurrence: None)
  Receive Date: 20090108
  Receipt Date: 20081230
  Transmission Date: 20090719
  Serious: Yes (Other)
  Sender: FDA-Public Use
  Company Number: DE-PFIZER INC-2008092373

PATIENT

DRUGS (1)
  1. AZULFIDINE EN-TABS [Suspect]
     Indication: UVEITIS
     Dosage: 200 MG, DAILY
     Route: 048
     Dates: start: 20080801, end: 20081030

REACTIONS (1)
  - COOMBS NEGATIVE HAEMOLYTIC ANAEMIA [None]
